FAERS Safety Report 13399542 (Version 1)
Quarter: 2017Q2

REPORT INFORMATION
  Report Type: Other
  Country: DE (occurrence: DE)
  Receive Date: 20170404
  Receipt Date: 20170404
  Transmission Date: 20170830
  Serious: Yes (Other)
  Sender: FDA-Public Use
  Company Number: DE-LUPIN PHARMACEUTICALS INC.-E2B_00006721

PATIENT
  Age: 54 Year
  Sex: Male

DRUGS (15)
  1. SERTRALINE [Suspect]
     Active Substance: SERTRALINE HYDROCHLORIDE
     Dosage: 150 MG,UNK,UNKNOWN
     Route: 048
     Dates: start: 20151017, end: 20151022
  2. TRIMINEURIN [Suspect]
     Active Substance: TRIMIPRAMINE MALEATE
     Dosage: 75 MG,UNK,UNKNOWN
     Route: 048
     Dates: start: 20151012, end: 20151015
  3. ERGENYL [Concomitant]
     Active Substance: VALPROIC ACID
     Dosage: 1200 MG,UNK,UNKNOWN
     Route: 048
     Dates: start: 20151001, end: 20151018
  4. EXFORGE [Concomitant]
     Active Substance: AMLODIPINE BESYLATE\VALSARTAN
     Indication: PRODUCT USED FOR UNKNOWN INDICATION
     Dosage: 5/80 MG
     Route: 065
  5. SERTRALINE [Suspect]
     Active Substance: SERTRALINE HYDROCHLORIDE
     Indication: PRODUCT USED FOR UNKNOWN INDICATION
     Dosage: 25 MG,UNK,UNKNOWN
     Route: 048
     Dates: start: 20150930, end: 20151006
  6. SERTRALINE [Suspect]
     Active Substance: SERTRALINE HYDROCHLORIDE
     Dosage: 100 MG,UNK,UNKNOWN
     Route: 048
     Dates: start: 20151013, end: 20151016
  7. TRIMINEURIN [Suspect]
     Active Substance: TRIMIPRAMINE MALEATE
     Indication: PRODUCT USED FOR UNKNOWN INDICATION
     Dosage: 100 MG,UNK,UNKNOWN
     Route: 048
     Dates: end: 20151011
  8. QUETIAPINE RETARD [Concomitant]
     Active Substance: QUETIAPINE
     Indication: PRODUCT USED FOR UNKNOWN INDICATION
     Dosage: 200 MG,UNK,UNKNOWN
     Route: 048
     Dates: end: 20151028
  9. SERTRALINE [Suspect]
     Active Substance: SERTRALINE HYDROCHLORIDE
     Dosage: 50 MG,UNK,UNKNOWN
     Route: 048
     Dates: start: 20151007, end: 20151009
  10. L-THYROXIN [Concomitant]
     Active Substance: LEVOTHYROXINE SODIUM
     Indication: PRODUCT USED FOR UNKNOWN INDICATION
     Dosage: 75 ?G,UNK,UNKNOWN
     Route: 048
  11. TRIMINEURIN [Suspect]
     Active Substance: TRIMIPRAMINE MALEATE
     Dosage: 50 MG,UNK,UNKNOWN
     Route: 048
     Dates: start: 20151016, end: 20151018
  12. ERGENYL [Concomitant]
     Active Substance: VALPROIC ACID
     Indication: PRODUCT USED FOR UNKNOWN INDICATION
     Dosage: 1500 MG,UNK,UNKNOWN
     Route: 048
     Dates: end: 20150930
  13. ERGENYL [Concomitant]
     Active Substance: VALPROIC ACID
     Dosage: 600 MG,UNK,UNKNOWN
     Route: 048
     Dates: start: 20151020, end: 20151026
  14. ERGENYL [Concomitant]
     Active Substance: VALPROIC ACID
     Dosage: 900 MG,UNK,UNKNOWN
     Route: 048
     Dates: start: 20151019, end: 20151019
  15. SERTRALINE [Suspect]
     Active Substance: SERTRALINE HYDROCHLORIDE
     Dosage: 75 MG,UNK,UNKNOWN
     Route: 048
     Dates: start: 20151010, end: 20151012

REACTIONS (1)
  - Thrombocytopenia [Recovered/Resolved]

NARRATIVE: CASE EVENT DATE: 20151008
